FAERS Safety Report 25641443 (Version 1)
Quarter: 2025Q3

REPORT INFORMATION
  Report Type: Spontaneous
  Country: RS (occurrence: RS)
  Receive Date: 20250804
  Receipt Date: 20250804
  Transmission Date: 20251021
  Serious: Yes (Other)
  Sender: ALEXION PHARMACEUTICALS
  Company Number: RS-AstraZeneca-2023A292773

PATIENT
  Sex: Male

DRUGS (3)
  1. KOSELUGO [Suspect]
     Active Substance: SELUMETINIB
     Indication: Neurofibromatosis
     Dosage: 45 MILLIGRAM, BID
     Dates: start: 20231206
  2. KOSELUGO [Suspect]
     Active Substance: SELUMETINIB
     Dosage: 35 MILLIGRAM, QD
  3. KOSELUGO [Suspect]
     Active Substance: SELUMETINIB
     Dosage: 10 MILLIGRAM, BID

REACTIONS (3)
  - Appendicitis [Unknown]
  - Rash [Recovered/Resolved]
  - Off label use [Unknown]

NARRATIVE: CASE EVENT DATE: 20231218
